FAERS Safety Report 8224714-0 (Version None)
Quarter: 2012Q1

REPORT INFORMATION
  Report Type: 
  Country: None (occurrence: None)
  Receive Date: 20120321
  Receipt Date: 20120313
  Transmission Date: 20120608
  Serious: Yes (Hospitalization, Other)
  Sender: FDA-Public Use
  Company Number: PHHY2011US32867

PATIENT
  Sex: Female

DRUGS (2)
  1. AVONEX [Concomitant]
     Dates: start: 20110601
  2. GILENYA [Suspect]
     Indication: MULTIPLE SCLEROSIS
     Dosage: 0.5 MG, QD
     Route: 048
     Dates: start: 20101130, end: 20110411

REACTIONS (4)
  - THERMAL BURN [None]
  - COLITIS ULCERATIVE [None]
  - DIARRHOEA [None]
  - WEIGHT DECREASED [None]
